FAERS Safety Report 26181422 (Version 1)
Quarter: 2025Q4

REPORT INFORMATION
  Report Type: Spontaneous
  Country: US (occurrence: None)
  Receive Date: 20251221
  Receipt Date: 20251221
  Transmission Date: 20260117
  Serious: No
  Sender: ALKERMES
  Company Number: US-ALKERMES INC.-ALK-2025-003315

PATIENT
  Age: 52 Year
  Sex: Male

DRUGS (3)
  1. VIVITROL [Suspect]
     Active Substance: NALTREXONE
     Indication: Alcoholism
     Dosage: 380 MILLIGRAM, QMO
  2. IBUPROFEN [Concomitant]
     Active Substance: IBUPROFEN
     Indication: Product used for unknown indication
     Dosage: UNK
     Route: 065
  3. VITAMINS NOS [Concomitant]
     Active Substance: VITAMINS
     Indication: Product used for unknown indication
     Dosage: UNK
     Route: 065

REACTIONS (3)
  - Product leakage [Recovered/Resolved]
  - Product physical issue [Recovered/Resolved]
  - Wrong technique in product usage process [Recovered/Resolved]

NARRATIVE: CASE EVENT DATE: 20251217
